FAERS Safety Report 10861281 (Version 2)
Quarter: 2015Q1

REPORT INFORMATION
  Report Type: Report from Study
  Country: ZA (occurrence: US)
  Receive Date: 20150224
  Receipt Date: 20150226
  Transmission Date: 20150721
  Serious: Yes (Life-Threatening, Hospitalization, Other)
  Sender: FDA-Public Use
  Company Number: US-BRISTOL-MYERS SQUIBB COMPANY-BMS-2014-002624

PATIENT
  Age: 9 Year
  Sex: Female
  Weight: 22.65 kg

DRUGS (8)
  1. RIMACTAZID [Suspect]
     Active Substance: ISONIAZID\RIFAMPIN
     Indication: TUBERCULOSIS
     Dosage: UNK, QD
     Route: 048
     Dates: end: 20141204
  2. EFAVIRENZ [Suspect]
     Active Substance: EFAVIRENZ
     Indication: ANTIRETROVIRAL THERAPY
     Dosage: UNK, BID
     Route: 048
     Dates: end: 20141204
  3. LAMIVUDINE. [Suspect]
     Active Substance: LAMIVUDINE
     Indication: ANTIRETROVIRAL THERAPY
     Dosage: UNK, BID
     Route: 048
     Dates: end: 20141204
  4. ABACAVIR [Suspect]
     Active Substance: ABACAVIR
     Indication: ANTIRETROVIRAL THERAPY
     Dosage: UNK, BID
     Route: 048
     Dates: end: 20141204
  5. RALTEGRAVIR [Suspect]
     Active Substance: RALTEGRAVIR
     Indication: ANTIRETROVIRAL THERAPY
     Dosage: 300 MG, BID
     Route: 048
     Dates: start: 20141118, end: 20141204
  6. PYRAZINAMIDE. [Suspect]
     Active Substance: PYRAZINAMIDE
     Indication: TUBERCULOSIS
     Dosage: UNK, QD
     Route: 048
     Dates: start: 20141015, end: 20141204
  7. BACTRIM [Suspect]
     Active Substance: SULFAMETHOXAZOLE\TRIMETHOPRIM
     Indication: ANTIFUNGAL PROPHYLAXIS
     Dosage: UNK, BID
     Route: 048
     Dates: start: 20141015, end: 20141204
  8. ETHAMBUTOL [Suspect]
     Active Substance: ETHAMBUTOL HYDROCHLORIDE
     Indication: TUBERCULOSIS
     Dosage: UNK, QD
     Route: 048
     Dates: start: 20141015, end: 20141204

REACTIONS (5)
  - Aspartate aminotransferase increased [Recovering/Resolving]
  - Diarrhoea [Recovered/Resolved]
  - Alanine aminotransferase increased [Recovering/Resolving]
  - Drug eruption [Recovering/Resolving]
  - Vomiting [Recovered/Resolved]

NARRATIVE: CASE EVENT DATE: 20141203
